FAERS Safety Report 17830168 (Version 1)
Quarter: 2020Q2

REPORT INFORMATION
  Report Type: Spontaneous
  Country: GB (occurrence: GB)
  Receive Date: 20200527
  Receipt Date: 20200527
  Transmission Date: 20200714
  Serious: Yes (Hospitalization)
  Sender: FDA-Public Use
  Company Number: GB-TEVA-2020-GB-1240022

PATIENT
  Age: 35 Year
  Sex: Female
  Weight: 62 kg

DRUGS (6)
  1. PROTOPIC [Concomitant]
     Active Substance: TACROLIMUS
  2. MOMETASONE [Concomitant]
     Active Substance: MOMETASONE
  3. VENTOLIN [Concomitant]
     Active Substance: ALBUTEROL SULFATE
  4. MIRTAZAPINE. [Suspect]
     Active Substance: MIRTAZAPINE
     Indication: ANXIETY
     Route: 065
  5. DUORESP SPIROMAX [Concomitant]
     Active Substance: BUDESONIDE\FORMOTEROL
  6. FEXOFENADINE HYDROCHLORIDE. [Concomitant]
     Active Substance: FEXOFENADINE HYDROCHLORIDE

REACTIONS (3)
  - Dizziness [Recovered/Resolved]
  - Blood pressure decreased [Recovered/Resolved]
  - Heart rate increased [Recovered/Resolved]
